FAERS Safety Report 8590549-2 (Version None)
Quarter: 2012Q3

REPORT INFORMATION
  Report Type: 
  Country: None (occurrence: None)
  Receive Date: 20120813
  Receipt Date: 20120802
  Transmission Date: 20120928
  Serious: Yes (Other)
  Sender: FDA-Public Use
  Company Number: IE-ASTRAZENECA-2012SE54949

PATIENT
  Age: 72 Year
  Sex: Male

DRUGS (2)
  1. CASODEX [Suspect]
     Route: 048
     Dates: start: 20120701
  2. OTHER DRUGS [Suspect]
     Route: 065

REACTIONS (1)
  - BONE MARROW FAILURE [None]
